FAERS Safety Report 19998324 (Version 1)
Quarter: 2021Q4

REPORT INFORMATION
  Report Type: Spontaneous
  Country: GB (occurrence: US)
  Receive Date: 20211026
  Receipt Date: 20211026
  Transmission Date: 20220303
  Serious: Yes (Other)
  Sender: FDA-Public Use
  Company Number: US-BRISTOL-MYERS SQUIBB COMPANY-BMS-2021-109185

PATIENT
  Age: 30 Year
  Sex: Female

DRUGS (2)
  1. NIVOLUMAB [Suspect]
     Active Substance: NIVOLUMAB
     Indication: Fibrosarcoma
     Dosage: 3 MILLIGRAM/KILOGRAM, Q3WK
     Route: 065
     Dates: start: 202001
  2. IPILIMUMAB [Suspect]
     Active Substance: IPILIMUMAB
     Indication: Fibrosarcoma
     Dosage: 1 MILLIGRAM/KILOGRAM, Q3WK
     Route: 065
     Dates: start: 202001

REACTIONS (2)
  - Autoimmune hepatitis [Recovered/Resolved]
  - Intentional product use issue [Unknown]
